FAERS Safety Report 5679468-9 (Version None)
Quarter: 2008Q1

REPORT INFORMATION
  Report Type: 
  Country: None (occurrence: None)
  Receive Date: 20080325
  Receipt Date: 20080313
  Transmission Date: 20080703
  Serious: Yes (Death)
  Sender: FDA-Public Use
  Company Number: US-PFIZER INC-2008006653

PATIENT
  Sex: Female
  Weight: 72.6 kg

DRUGS (25)
  1. ZYVOX [Suspect]
     Indication: STAPHYLOCOCCAL SEPSIS
     Route: 042
  2. ZYVOX [Suspect]
     Indication: STAPHYLOCOCCAL SEPSIS
     Route: 048
  3. LEVAQUIN [Concomitant]
  4. LEVAQUIN [Concomitant]
     Route: 042
  5. SOLU-MEDROL [Concomitant]
     Dates: end: 20071228
  6. PREDNISONE TAB [Concomitant]
     Dosage: DAILY DOSE:20MG
  7. XANAX [Concomitant]
     Indication: ANXIETY
     Route: 048
  8. AMARYL [Concomitant]
     Dosage: DAILY DOSE:2MG
  9. ASPIRIN [Concomitant]
     Dosage: DAILY DOSE:81MG
  10. CLOZARIL [Concomitant]
     Dosage: DAILY DOSE:100MG
  11. MUCINEX [Concomitant]
  12. ATROVENT [Concomitant]
  13. SALBUTAMOL [Concomitant]
  14. PULMICORT [Concomitant]
  15. LYRICA [Concomitant]
  16. PROTONIX [Concomitant]
  17. BUMEX [Concomitant]
  18. K-DUR 10 [Concomitant]
  19. MS CONTIN [Concomitant]
  20. NITRO-BID [Concomitant]
  21. PROSOM [Concomitant]
     Indication: INSOMNIA
  22. TYLENOL (CAPLET) [Concomitant]
     Indication: PAIN
     Route: 048
  23. TYLENOL (CAPLET) [Concomitant]
     Indication: PYREXIA
  24. NITROSTAT [Concomitant]
     Route: 060
  25. LASIX [Concomitant]
     Indication: OEDEMA

REACTIONS (2)
  - CHRONIC OBSTRUCTIVE PULMONARY DISEASE [None]
  - EMPHYSEMA [None]
